FAERS Safety Report 8514305-6 (Version None)
Quarter: 2012Q3

REPORT INFORMATION
  Report Type: 
  Country: None (occurrence: None)
  Receive Date: 20120717
  Receipt Date: 20120710
  Transmission Date: 20120928
  Serious: No
  Sender: FDA-Public Use
  Company Number: US-B.I. PHARMACEUTICALS,INC./RIDGEFIELD-2012-BP-11386BP

PATIENT
  Sex: Male
  Weight: 110.68 kg

DRUGS (10)
  1. MONOXIDIL [Concomitant]
     Dosage: 40 MG
     Route: 048
  2. CLONIDINE [Concomitant]
     Indication: HYPERTENSION
     Dosage: 6 MG
     Route: 048
  3. POTASSIUM CHLORIDE [Concomitant]
     Indication: SUPPLEMENTATION THERAPY
  4. PRADAXA [Suspect]
     Indication: ANTICOAGULANT THERAPY
  5. METOPROLOL TARTRATE [Concomitant]
     Indication: HYPERTENSION
     Route: 048
  6. HYDROCHLOROTHIAZIDE [Concomitant]
  7. AVALIDE [Concomitant]
     Indication: HYPERTENSION
     Route: 048
  8. LIVALO [Concomitant]
     Indication: BLOOD CHOLESTEROL INCREASED
     Dosage: 2 MG
  9. PRADAXA [Suspect]
     Indication: ATRIAL FIBRILLATION
     Dosage: 300 MG
     Route: 048
     Dates: start: 20110725
  10. TEMAZEPAM [Concomitant]
     Indication: INSOMNIA
     Dosage: 30 MG
     Route: 048

REACTIONS (5)
  - ABDOMINAL DISTENSION [None]
  - DYSPEPSIA [None]
  - CONSTIPATION [None]
  - CYSTITIS [None]
  - DECREASED APPETITE [None]
